FAERS Safety Report 4608543-2 (Version None)
Quarter: 2005Q1

REPORT INFORMATION
  Report Type: 
  Country: None (occurrence: None)
  Receive Date: 20050311
  Receipt Date: 20050307
  Transmission Date: 20050727
  Serious: Yes (Hospitalization)
  Sender: FDA-Public Use
  Company Number: 2004AC00949

PATIENT
  Age: 54 Year
  Sex: Female

DRUGS (5)
  1. NEXIUM [Suspect]
     Indication: OESOPHAGITIS
     Dosage: 40 MG DAILY PO
     Route: 048
     Dates: start: 20040504
  2. NEXIUM [Suspect]
     Indication: OESOPHAGITIS
     Dosage: 40 MG BID PO
     Route: 048
     Dates: end: 20040901
  3. CARBAMAZEPINE DUMEX [Concomitant]
  4. DEPAKENE [Concomitant]
  5. OXAZEPAM [Concomitant]

REACTIONS (13)
  - ANGINA PECTORIS [None]
  - BURNING SENSATION [None]
  - CONTUSION [None]
  - ECCHYMOSIS [None]
  - GALACTORRHOEA [None]
  - INFARCTION [None]
  - MYALGIA [None]
  - PALPITATIONS [None]
  - PHARYNGOLARYNGEAL PAIN [None]
  - PRURITUS [None]
  - RASH ERYTHEMATOUS [None]
  - SYNCOPE [None]
  - THROAT TIGHTNESS [None]
